FAERS Safety Report 4934944-9 (Version None)
Quarter: 2006Q1

REPORT INFORMATION
  Report Type: 
  Country: None (occurrence: None)
  Receive Date: 20060306
  Receipt Date: 20060306
  Transmission Date: 20060701
  Serious: Yes (Hospitalization)
  Sender: FDA-Public Use
  Company Number: None

PATIENT
  Age: 73 Year
  Sex: Female
  Weight: 82 kg

DRUGS (1)
  1. BACLOFEN [Suspect]
     Indication: BACK PAIN
     Dosage: 1 TABLET ONLY PO
     Route: 048
     Dates: start: 20050712, end: 20050712

REACTIONS (3)
  - BODY TEMPERATURE INCREASED [None]
  - DIZZINESS [None]
  - NAUSEA [None]
